FAERS Safety Report 23398359 (Version 1)
Quarter: 2024Q1

REPORT INFORMATION
  Report Type: Spontaneous
  Country: US (occurrence: None)
  Receive Date: 20240112
  Receipt Date: 20240112
  Transmission Date: 20240410
  Serious: Yes (Disabling, Other)
  Sender: FDA-Public Use
  Company Number: None

PATIENT
  Age: 36 Year
  Sex: Female
  Weight: 60.75 kg

DRUGS (5)
  1. ENBREL [Suspect]
     Active Substance: ETANERCEPT
     Indication: Ankylosing spondylitis
     Dosage: OTHER QUANTITY : 4 INJECTION(S);?OTHER FREQUENCY : ONCE A WEEK;?
     Route: 058
     Dates: start: 20230615, end: 20231123
  2. METHADONE [Concomitant]
     Active Substance: METHADONE HYDROCHLORIDE
  3. FAMOTIDINE [Concomitant]
     Active Substance: FAMOTIDINE
  4. BENADRYL [Concomitant]
     Active Substance: DIPHENHYDRAMINE HYDROCHLORIDE
  5. TYLENOL [Concomitant]
     Active Substance: ACETAMINOPHEN

REACTIONS (10)
  - Nausea [None]
  - Vomiting [None]
  - Eructation [None]
  - Abdominal pain upper [None]
  - Weight decreased [None]
  - Fatigue [None]
  - Coeliac disease [None]
  - Rash [None]
  - Rosacea [None]
  - Eczema [None]

NARRATIVE: CASE EVENT DATE: 20231123
